FAERS Safety Report 7930937-8 (Version None)
Quarter: 2011Q4

REPORT INFORMATION
  Report Type: 
  Country: None (occurrence: None)
  Receive Date: 20111121
  Receipt Date: 20111117
  Transmission Date: 20120403
  Serious: Yes (Hospitalization)
  Sender: FDA-Public Use
  Company Number: JP-B.I. PHARMACEUTICALS,INC./RIDGEFIELD-2011-BP-26455NB

PATIENT
  Age: 85 Year
  Sex: Male

DRUGS (13)
  1. ZYRTEC [Concomitant]
     Route: 065
  2. TRICHLORMETHIAZIDE [Concomitant]
     Route: 065
  3. HIRUDOID [Concomitant]
     Route: 065
  4. REZALTAS [Concomitant]
     Indication: HYPERTENSION
     Route: 048
  5. MUCODYNE [Concomitant]
     Route: 065
  6. SAIBOKU-TO [Concomitant]
     Route: 065
  7. ANTEBATE [Concomitant]
     Route: 065
  8. SIGMART [Concomitant]
     Route: 065
  9. PRADAXA [Suspect]
     Indication: ATRIAL FIBRILLATION
     Dosage: 220 MG
     Route: 048
     Dates: start: 20111003, end: 20111104
  10. EPLERENONE [Concomitant]
     Route: 065
  11. MAGNESIUM SULFATE [Concomitant]
     Route: 065
  12. NEUER [Concomitant]
     Route: 048
  13. AZUCURENIN S [Concomitant]
     Route: 065

REACTIONS (1)
  - ERYTHEMA MULTIFORME [None]
